FAERS Safety Report 10254575 (Version 1)
Quarter: 2014Q2

REPORT INFORMATION
  Report Type: Spontaneous
  Country: US (occurrence: None)
  Receive Date: 20140620
  Receipt Date: 20140620
  Transmission Date: 20141212
  Serious: Yes (Other)
  Sender: FDA-Public Use
  Company Number: None

PATIENT
  Age: 66 Year
  Sex: Female

DRUGS (3)
  1. LAMOTRIGINE [Suspect]
     Indication: BIPOLAR I DISORDER
     Dosage: ONE PILL  QD ORAL
     Route: 048
  2. LAMOTRIGINE [Suspect]
     Indication: BIPOLAR I DISORDER
     Dosage: ONE HALF PILL  BID  ORAL
     Route: 048
     Dates: end: 20130910
  3. CYMBALTA [Concomitant]

REACTIONS (2)
  - Dizziness [None]
  - Balance disorder [None]
